FAERS Safety Report 6096028-9 (Version None)
Quarter: 2009Q1

REPORT INFORMATION
  Report Type: 
  Country: None (occurrence: None)
  Receive Date: 20090227
  Receipt Date: 20080813
  Transmission Date: 20090719
  Serious: No
  Sender: FDA-Public Use
  Company Number: A0742433A

PATIENT
  Age: 47 Year
  Sex: Female

DRUGS (7)
  1. LAMICTAL [Suspect]
     Indication: BIPOLAR DISORDER
     Dosage: 200MG TWICE PER DAY
     Route: 048
     Dates: start: 20071101
  2. METFORMIN [Concomitant]
  3. GLIPIZIDE [Concomitant]
  4. CYMBALTA [Concomitant]
  5. SULFASALAZINE [Concomitant]
  6. ENALAPRIL MALEATE [Concomitant]
  7. PRAVASTATIN [Concomitant]

REACTIONS (4)
  - ANXIETY [None]
  - FATIGUE [None]
  - MENTAL STATUS CHANGES [None]
  - RESTLESSNESS [None]
